FAERS Safety Report 14364365 (Version 1)
Quarter: 2018Q1

REPORT INFORMATION
  Report Type: Spontaneous
  Country: US (occurrence: US)
  Receive Date: 20180106
  Receipt Date: 20180106
  Transmission Date: 20180509
  Serious: No
  Sender: FDA-Public Use
  Company Number: None

PATIENT
  Age: 62 Year
  Sex: Female

DRUGS (1)
  1. DUPIXENT [Suspect]
     Active Substance: DUPILUMAB

REACTIONS (5)
  - Refusal of treatment by patient [None]
  - Dry mouth [None]
  - Depression [None]
  - Conjunctivitis [None]
  - Rash [None]

NARRATIVE: CASE EVENT DATE: 20180105
